FAERS Safety Report 21626379 (Version 2)
Quarter: 2023Q2

REPORT INFORMATION
  Report Type: Other
  Country: US (occurrence: None)
  Receive Date: 20221122
  Receipt Date: 20230602
  Transmission Date: 20230721
  Serious: Yes (Hospitalization, Other)
  Sender: FDA-Public Use
  Company Number: US-ROCHE-3219836

PATIENT
  Age: 54 Year
  Sex: Female
  Weight: 55.842 kg

DRUGS (6)
  1. OCREVUS [Suspect]
     Active Substance: OCRELIZUMAB
     Indication: Relapsing multiple sclerosis
     Dosage: INFUSE 300MG IV ON 08/JUL/2022 FOR SECOND HALF DOSE
     Route: 042
     Dates: start: 20220623
  2. OCREVUS [Suspect]
     Active Substance: OCRELIZUMAB
     Dosage: DOT: 2022-07-08, 2022-06-29
     Route: 042
     Dates: start: 20220629
  3. ADDERALL [Concomitant]
     Active Substance: AMPHETAMINE ASPARTATE\AMPHETAMINE SULFATE\DEXTROAMPHETAMINE SACCHARATE\DEXTROAMPHETAMINE SULFATE
  4. ADDERALL XR [Concomitant]
     Active Substance: AMPHETAMINE ASPARTATE\AMPHETAMINE SULFATE\DEXTROAMPHETAMINE SACCHARATE\DEXTROAMPHETAMINE SULFATE
  5. LORAZEPAM [Concomitant]
     Active Substance: LORAZEPAM
  6. CYMBALTA [Concomitant]
     Active Substance: DULOXETINE HYDROCHLORIDE

REACTIONS (7)
  - Herpes zoster [Recovered/Resolved]
  - Fall [Unknown]
  - Arthralgia [Unknown]
  - Ligament sprain [Not Recovered/Not Resolved]
  - Brain fog [Unknown]
  - Multiple sclerosis [Unknown]
  - Cerebrovascular accident [Not Recovered/Not Resolved]

NARRATIVE: CASE EVENT DATE: 20220901
